FAERS Safety Report 22145674 (Version 1)
Quarter: 2023Q1

REPORT INFORMATION
  Report Type: Spontaneous
  Country: NO (occurrence: NO)
  Receive Date: 20230328
  Receipt Date: 20230328
  Transmission Date: 20230417
  Serious: Yes (Other)
  Sender: FDA-Public Use
  Company Number: None

PATIENT

DRUGS (6)
  1. TRIUMEQ [Suspect]
     Active Substance: ABACAVIR SULFATE\DOLUTEGRAVIR SODIUM\LAMIVUDINE
     Indication: HIV test positive
     Dosage: 1 DF, QD
     Route: 065
     Dates: start: 20210924
  2. EMTRICITABINE\TENOFOVIR DISOPROXIL FUMARATE [Suspect]
     Active Substance: EMTRICITABINE\TENOFOVIR DISOPROXIL FUMARATE
     Indication: HIV test positive
     Dosage: 1 DF, QD
     Route: 065
     Dates: start: 20190524, end: 20210924
  3. EMTRICITABINE\TENOFOVIR DISOPROXIL [Suspect]
     Active Substance: EMTRICITABINE\TENOFOVIR DISOPROXIL
     Indication: HIV test positive
     Dosage: 1 DF, QD
     Route: 065
     Dates: start: 20190524, end: 20210924
  4. ISENTRESS [Suspect]
     Active Substance: RALTEGRAVIR POTASSIUM
     Indication: HIV test positive
     Dosage: 800 MG, QD, 1 DF, QD
     Route: 065
     Dates: start: 20190524, end: 20210924
  5. RALTEGRAVIR [Suspect]
     Active Substance: RALTEGRAVIR
     Indication: HIV infection
     Dosage: 1 DF, QD
     Route: 065
     Dates: start: 20190524, end: 20210924
  6. SYMBICORT [Concomitant]
     Active Substance: BUDESONIDE\FORMOTEROL FUMARATE DIHYDRATE
     Indication: Asthma
     Dosage: 1 DF, BID, INHALATION AEROSOL, SUSPENSION
     Route: 065
     Dates: start: 20180101

REACTIONS (1)
  - Osteonecrosis [Not Recovered/Not Resolved]

NARRATIVE: CASE EVENT DATE: 20220401
